FAERS Safety Report 8290194-2 (Version None)
Quarter: 2012Q2

REPORT INFORMATION
  Report Type: 
  Country: None (occurrence: None)
  Receive Date: 20120417
  Receipt Date: 20120405
  Transmission Date: 20120825
  Serious: Yes (Hospitalization, Other)
  Sender: FDA-Public Use
  Company Number: US-ACTELION-A-US2011-45594

PATIENT

DRUGS (31)
  1. PLAVIX [Concomitant]
  2. FLEXERIL [Concomitant]
  3. DUONEB [Concomitant]
  4. REGLAN [Concomitant]
  5. REVATIO [Concomitant]
  6. ALDACTAZIDE [Concomitant]
  7. JANUMET [Concomitant]
  8. COMBIVENT [Concomitant]
  9. PRADAXA [Concomitant]
  10. TRACLEER [Suspect]
     Indication: PULMONARY ARTERIAL HYPERTENSION
     Dosage: 125 MG, BID
     Route: 048
     Dates: start: 20100929
  11. PRAVASTATIN [Concomitant]
  12. ASPIRIN [Concomitant]
  13. VITAMIN B-12 [Concomitant]
  14. GLUCOSAMINE [Concomitant]
  15. ADVAIR DISKUS 100/50 [Concomitant]
  16. FLOMAX [Concomitant]
  17. LASIX [Concomitant]
  18. CALCIUM CARBONATE [Concomitant]
  19. ALLOPURINOL [Concomitant]
  20. NEXIUM [Concomitant]
  21. APIDRA [Concomitant]
  22. THEOPHYLLINE [Concomitant]
  23. VITAMIN D [Concomitant]
  24. FISH OIL [Concomitant]
  25. OXYGEN [Concomitant]
  26. BETHANECHOL [Concomitant]
  27. LANTUS [Concomitant]
  28. ALLEGRA [Concomitant]
  29. VICODIN [Concomitant]
  30. ZOCOR [Concomitant]
  31. PROVEX CV [Concomitant]

REACTIONS (10)
  - CHEMOTHERAPY [None]
  - BREAST MASS [None]
  - LYMPHOMA [None]
  - VARICOSE VEIN [None]
  - DIZZINESS [None]
  - ULCER HAEMORRHAGE [None]
  - ANAEMIA [None]
  - GASTRIC CANCER [None]
  - ASTHENIA [None]
  - URINARY TRACT INFECTION [None]
